FAERS Safety Report 10983523 (Version 1)
Quarter: 2015Q1

REPORT INFORMATION
  Report Type: Spontaneous
  Country: US (occurrence: None)
  Receive Date: 20150227
  Receipt Date: 20150227
  Transmission Date: 20150721
  Serious: Yes (Other)
  Sender: FDA-Public Use
  Company Number: LMI-2014-00119

PATIENT
  Age: 56 Year
  Sex: Male
  Weight: 103.4 kg

DRUGS (2)
  1. LISINOPRIL. [Concomitant]
     Active Substance: LISINOPRIL
  2. DEFINITY [Suspect]
     Active Substance: PERFLUTREN
     Indication: STRESS ECHOCARDIOGRAM
     Dosage: (1.8 ML OF DEFINITY DILUTED IN 8.2 ML OF NORMAL SALINE) (3 ML,1 IN 1 D)
     Route: 040
     Dates: start: 20140325, end: 20140325

REACTIONS (6)
  - Dyspnoea [None]
  - Oropharyngeal swelling [None]
  - Rash generalised [None]
  - Pruritus [None]
  - Chest pain [None]
  - Flushing [None]

NARRATIVE: CASE EVENT DATE: 20140325
